FAERS Safety Report 19652025 (Version 3)
Quarter: 2022Q1

REPORT INFORMATION
  Report Type: Report from Study
  Country: US (occurrence: US)
  Receive Date: 20210803
  Receipt Date: 20220217
  Transmission Date: 20220423
  Serious: Yes (Hospitalization)
  Sender: FDA-Public Use
  Company Number: US-TAKEDA-2021TUS034182

PATIENT
  Age: 58 Year
  Sex: Female
  Weight: 70 kg

DRUGS (34)
  1. TEDUGLUTIDE [Suspect]
     Active Substance: TEDUGLUTIDE
     Indication: Short-bowel syndrome
     Dosage: UNK UNK, QD
     Route: 065
     Dates: start: 20181008
  2. TEDUGLUTIDE [Suspect]
     Active Substance: TEDUGLUTIDE
     Indication: Short-bowel syndrome
     Dosage: UNK UNK, QD
     Route: 065
     Dates: start: 20181008
  3. TEDUGLUTIDE [Suspect]
     Active Substance: TEDUGLUTIDE
     Indication: Short-bowel syndrome
     Dosage: UNK UNK, QD
     Route: 065
     Dates: start: 20181008
  4. TEDUGLUTIDE [Suspect]
     Active Substance: TEDUGLUTIDE
     Indication: Short-bowel syndrome
     Dosage: UNK UNK, QD
     Route: 065
     Dates: start: 20181008
  5. TEDUGLUTIDE [Suspect]
     Active Substance: TEDUGLUTIDE
     Dosage: 0.347 MILLILITER, DAILY
     Route: 058
  6. TEDUGLUTIDE [Suspect]
     Active Substance: TEDUGLUTIDE
     Dosage: 0.347 MILLILITER, DAILY
     Route: 058
  7. TEDUGLUTIDE [Suspect]
     Active Substance: TEDUGLUTIDE
     Dosage: 0.347 MILLILITER, DAILY
     Route: 058
  8. TEDUGLUTIDE [Suspect]
     Active Substance: TEDUGLUTIDE
     Dosage: 0.347 MILLILITER, DAILY
     Route: 058
  9. TEDUGLUTIDE [Suspect]
     Active Substance: TEDUGLUTIDE
     Dosage: 0.05 MILLIGRAM/KILOGRAM
     Route: 058
     Dates: start: 201810
  10. TEDUGLUTIDE [Suspect]
     Active Substance: TEDUGLUTIDE
     Dosage: 0.05 MILLIGRAM/KILOGRAM
     Route: 058
     Dates: start: 201810
  11. TEDUGLUTIDE [Suspect]
     Active Substance: TEDUGLUTIDE
     Dosage: 0.05 MILLIGRAM/KILOGRAM
     Route: 058
     Dates: start: 201810
  12. TEDUGLUTIDE [Suspect]
     Active Substance: TEDUGLUTIDE
     Dosage: 0.05 MILLIGRAM/KILOGRAM
     Route: 058
     Dates: start: 201810
  13. TEDUGLUTIDE [Suspect]
     Active Substance: TEDUGLUTIDE
     Dosage: 0.347 UNKNOWN, DAILY
     Route: 065
     Dates: start: 20181008
  14. TEDUGLUTIDE [Suspect]
     Active Substance: TEDUGLUTIDE
     Dosage: 0.347 UNKNOWN, DAILY
     Route: 065
     Dates: start: 20181008
  15. TEDUGLUTIDE [Suspect]
     Active Substance: TEDUGLUTIDE
     Dosage: 0.347 UNKNOWN, DAILY
     Route: 065
     Dates: start: 20181008
  16. TEDUGLUTIDE [Suspect]
     Active Substance: TEDUGLUTIDE
     Dosage: 0.347 UNKNOWN, DAILY
     Route: 065
     Dates: start: 20181008
  17. ACARBOSE [Concomitant]
     Active Substance: ACARBOSE
  18. ASPIRIN [Concomitant]
     Active Substance: ASPIRIN
  19. BUPROPION [Concomitant]
     Active Substance: BUPROPION
  20. BUSPIRONE HCL [Concomitant]
     Active Substance: BUSPIRONE HYDROCHLORIDE
  21. CLONAZEPAM [Concomitant]
     Active Substance: CLONAZEPAM
  22. DOXEPIN [Concomitant]
     Active Substance: DOXEPIN
  23. FLECAINIDE [Concomitant]
     Active Substance: FLECAINIDE
  24. GABAPENTIN [Concomitant]
     Active Substance: GABAPENTIN
  25. GLUCAGON [Concomitant]
     Active Substance: GLUCAGON
  26. HYDROXYZINE [Concomitant]
     Active Substance: HYDROXYZINE HYDROCHLORIDE
  27. IBUPROFEN [Concomitant]
     Active Substance: IBUPROFEN
  28. LEVOTHYROXINE [Concomitant]
     Active Substance: LEVOTHYROXINE
  29. RELAFEN [Concomitant]
     Active Substance: NABUMETONE
  30. ONDANSETRON [Concomitant]
     Active Substance: ONDANSETRON
  31. OXYCODONE [Concomitant]
     Active Substance: OXYCODONE
  32. TRIAMCINOLONE [Concomitant]
     Active Substance: TRIAMCINOLONE
  33. VENLAFAXINE [Concomitant]
     Active Substance: VENLAFAXINE HYDROCHLORIDE
  34. ZONEGRAN [Concomitant]
     Active Substance: ZONISAMIDE

REACTIONS (4)
  - Hospitalisation [Recovered/Resolved]
  - Weight decreased [Unknown]
  - Therapy interrupted [Unknown]
  - Product availability issue [Unknown]

NARRATIVE: CASE EVENT DATE: 20210627
